FAERS Safety Report 14810602 (Version 2)
Quarter: 2018Q3

REPORT INFORMATION
  Report Type: Report from Study
  Country: US (occurrence: US)
  Receive Date: 20180425
  Receipt Date: 20180719
  Transmission Date: 20181010
  Serious: No
  Sender: FDA-Public Use
  Company Number: US-AMGEN-USASL2018032655

PATIENT
  Sex: Female

DRUGS (1)
  1. REPATHA [Suspect]
     Active Substance: EVOLOCUMAB
     Indication: HYPERCHOLESTEROLAEMIA
     Dosage: 140 MG, Q2WK
     Route: 058
     Dates: start: 201710, end: 2018

REACTIONS (4)
  - Depression [Recovering/Resolving]
  - Sluggishness [Recovering/Resolving]
  - Myalgia [Recovering/Resolving]
  - Injection site pain [Recovering/Resolving]
